FAERS Safety Report 6690348-2 (Version None)
Quarter: 2010Q2

REPORT INFORMATION
  Report Type: 
  Country: None (occurrence: None)
  Receive Date: 20100414
  Receipt Date: 20090416
  Transmission Date: 20101027
  Serious: No
  Sender: FDA-Public Use
  Company Number: 09-028

PATIENT
  Age: 67 Year
  Sex: Female

DRUGS (6)
  1. ALEVE [Suspect]
     Indication: ARTHRITIS
     Dosage: 220 MG, DAILY, ORAL
     Route: 048
     Dates: start: 20080101
  2. ALEVE [Suspect]
     Indication: ARTHRITIS
     Dosage: 220 MG, DAILY, ORAL
     Route: 048
     Dates: start: 20081001
  3. ZYRTEC [Concomitant]
  4. ALLOPURINOL [Concomitant]
  5. DIOVAN HCT [Concomitant]
  6. ALEVE (CAPLET) [Concomitant]

REACTIONS (1)
  - VULVOVAGINAL DISCOMFORT [None]
